FAERS Safety Report 7049197-8 (Version None)
Quarter: 2010Q4

REPORT INFORMATION
  Report Type: 
  Country: None (occurrence: None)
  Receive Date: 20101018
  Receipt Date: 20101007
  Transmission Date: 20110411
  Serious: Yes (Hospitalization)
  Sender: FDA-Public Use
  Company Number: CA-JNJFOC-20101002716

PATIENT
  Sex: Female
  Weight: 73 kg

DRUGS (4)
  1. REMICADE [Suspect]
     Indication: RHEUMATOID ARTHRITIS
     Dosage: 3 INFUSIONS TOTAL
     Route: 042
  2. METHOTREXATE [Concomitant]
  3. OXYCODONE HCL [Concomitant]
  4. TEMAZEPAM [Concomitant]

REACTIONS (1)
  - PANCREATITIS [None]
